FAERS Safety Report 6917751-7 (Version None)
Quarter: 2010Q3

REPORT INFORMATION
  Report Type: 
  Country: None (occurrence: None)
  Receive Date: 20100810
  Receipt Date: 20100729
  Transmission Date: 20110219
  Serious: Yes (Other)
  Sender: FDA-Public Use
  Company Number: US-PFIZER INC-2010096598

PATIENT
  Sex: Male
  Weight: 97.052 kg

DRUGS (6)
  1. CHANTIX [Suspect]
     Indication: SMOKING CESSATION THERAPY
     Dosage: 0.5 MG, DAILY
     Route: 048
     Dates: start: 20100620, end: 20100623
  2. ALLOPURINOL [Concomitant]
     Dosage: 100 MG, UNK
  3. LEVOTHYROXINE [Concomitant]
     Dosage: 150 MCG
  4. PRAVASTATIN [Concomitant]
     Dosage: 40 MG, UNK
  5. OMEPRAZOLE [Concomitant]
     Dosage: 20 MG, UNK
  6. LISINOPRIL [Concomitant]
     Dosage: UNK
     Dates: end: 20100601

REACTIONS (4)
  - BLOOD PRESSURE DECREASED [None]
  - CARDIAC FLUTTER [None]
  - DIZZINESS [None]
  - PRESYNCOPE [None]
